FAERS Safety Report 6530475-3 (Version None)
Quarter: 2010Q1

REPORT INFORMATION
  Report Type: 
  Country: None (occurrence: None)
  Receive Date: 20100106
  Receipt Date: 20100106
  Transmission Date: 20100710
  Serious: Yes (Disabling)
  Sender: FDA-Public Use
  Company Number: None

PATIENT
  Sex: Male
  Weight: 90.7194 kg

DRUGS (3)
  1. XENAZINE [Suspect]
     Indication: BALLISMUS
     Dosage: 1 DOSE 4 WEEKS; 2 DOSE 2 WEEKS
     Dates: start: 20090917, end: 20091204
  2. XENAZINE [Suspect]
     Indication: HEMIPARESIS
     Dosage: 1 DOSE 4 WEEKS; 2 DOSE 2 WEEKS
     Dates: start: 20090917, end: 20091204
  3. XENAZINE [Suspect]
     Indication: TREMOR
     Dosage: 1 DOSE 4 WEEKS; 2 DOSE 2 WEEKS
     Dates: start: 20090917, end: 20091204

REACTIONS (3)
  - APHASIA [None]
  - CONDITION AGGRAVATED [None]
  - DYSKINESIA [None]
